FAERS Safety Report 4988341-0 (Version None)
Quarter: 2006Q2

REPORT INFORMATION
  Report Type: 
  Country: None (occurrence: None)
  Receive Date: 20060502
  Receipt Date: 20060421
  Transmission Date: 20061013
  Serious: Yes (Other)
  Sender: FDA-Public Use
  Company Number: PT-JNJFOC-20060203666

PATIENT
  Sex: Female
  Weight: 53 kg

DRUGS (6)
  1. REMICADE [Suspect]
     Dosage: 7TH INFUSION (4TH MAINTENANCE PERFUSION)
     Route: 042
  2. REMICADE [Suspect]
     Dosage: 6TH INFUSION (3RD MAINTENANCE PERFUSION)
     Route: 042
  3. REMICADE [Suspect]
     Dosage: 5TH INFUSION (2ND MAINTENANCE PERFUSION)
     Route: 042
  4. REMICADE [Suspect]
     Indication: CROHN'S DISEASE
     Route: 042
  5. METHOTREXATE [Concomitant]
  6. METHOTREXATE [Concomitant]

REACTIONS (4)
  - ASTHENIA [None]
  - COUGH [None]
  - INSOMNIA [None]
  - MIGRAINE [None]
